FAERS Safety Report 8121233-7 (Version None)
Quarter: 2012Q1

REPORT INFORMATION
  Report Type: 
  Country: None (occurrence: None)
  Receive Date: 20120208
  Receipt Date: 20120130
  Transmission Date: 20120608
  Serious: Yes (Hospitalization)
  Sender: FDA-Public Use
  Company Number: US-BAYER-201012422NA

PATIENT
  Age: 19 Year
  Sex: Female
  Weight: 54.422 kg

DRUGS (3)
  1. YASMIN [Suspect]
     Indication: CONTRACEPTION
     Dosage: 1 DF (DAILY DOSE), QD, ORAL
     Route: 048
     Dates: start: 20060601, end: 20080301
  2. IBUPROFEN [Concomitant]
     Indication: PAIN
     Dosage: 200 MG, UNK
     Route: 048
     Dates: start: 20080301, end: 20100101
  3. MULTI-VITAMIN [Concomitant]

REACTIONS (3)
  - DEEP VEIN THROMBOSIS [None]
  - PAIN [None]
  - THROMBOSIS [None]
